FAERS Safety Report 17465606 (Version 4)
Quarter: 2020Q3

REPORT INFORMATION
  Report Type: Spontaneous
  Country: DE (occurrence: DE)
  Receive Date: 20200227
  Receipt Date: 20200819
  Transmission Date: 20201102
  Serious: Yes (Life-Threatening, Hospitalization, Other)
  Sender: FDA-Public Use
  Company Number: DE-ASTELLAS-2020US000874

PATIENT
  Age: 63 Year
  Sex: Female
  Weight: 55 kg

DRUGS (9)
  1. PROGRAF [Suspect]
     Active Substance: TACROLIMUS
     Indication: RENAL TRANSPLANT
     Dosage: 2 MG, TWICE DAILY (2 MG IN THE MORNING, AND 2 MG IN THE EVENING)
     Route: 048
     Dates: start: 20150420
  2. PROGRAF [Interacting]
     Active Substance: TACROLIMUS
     Dosage: 2.5 MG, TWICE DAILY (10.AM IN MORNING AND 10 PM IN THE EVENING)
     Route: 048
  3. PROGRAF [Interacting]
     Active Substance: TACROLIMUS
     Dosage: 2 MG (1X2MG), UNKNOWN FREQ.
     Route: 048
  4. PREDNISON [Concomitant]
     Active Substance: PREDNISONE
     Indication: PRODUCT USED FOR UNKNOWN INDICATION
     Route: 065
  5. ASPIRIN. [Interacting]
     Active Substance: ASPIRIN
     Indication: PRODUCT USED FOR UNKNOWN INDICATION
     Dosage: UNK UNK, ONCE DAILY (IN 10 A.M IN THE MORNING)
     Route: 065
  6. AZATHIOPRINE. [Concomitant]
     Active Substance: AZATHIOPRINE
     Indication: PRODUCT USED FOR UNKNOWN INDICATION
     Route: 065
  7. SANDIMMUN OPTORAL [Concomitant]
     Active Substance: CYCLOSPORINE
     Indication: PRODUCT USED FOR UNKNOWN INDICATION
     Dosage: UNK UNK, UNKNOWN FREQ.
     Route: 065
  8. PROGRAF [Interacting]
     Active Substance: TACROLIMUS
     Dosage: 2.5 MG (1X 2.5 MG), UNKNOWN FREQ.
     Route: 048
  9. SANDIMMUN [Concomitant]
     Active Substance: CYCLOSPORINE
     Indication: PRODUCT USED FOR UNKNOWN INDICATION
     Dosage: UNK UNK, UNKNOWN FREQ.
     Route: 065

REACTIONS (8)
  - Drug interaction [Unknown]
  - Pleural effusion [Recovered/Resolved]
  - Pneumonitis [Recovered/Resolved]
  - Coagulopathy [Recovered/Resolved]
  - Asthenia [Recovered/Resolved]
  - Retroperitoneal haemorrhage [Recovered/Resolved]
  - Internal haemorrhage [Recovered/Resolved]
  - Pneumothorax [Recovered/Resolved]
